FAERS Safety Report 24205775 (Version 2)
Quarter: 2024Q3

REPORT INFORMATION
  Report Type: Report from Study
  Country: CN (occurrence: CN)
  Receive Date: 20240813
  Receipt Date: 20240829
  Transmission Date: 20241017
  Serious: No
  Sender: DAIICHI
  Company Number: CN-DSJP-DSJ-2024-139819

PATIENT
  Sex: Female
  Weight: 70 kg

DRUGS (10)
  1. ENHERTU [Suspect]
     Active Substance: FAM-TRASTUZUMAB DERUXTECAN-NXKI
     Indication: Breast cancer
     Dosage: 5.4 MG/KG, ONCE EVERY 3 WK (DRIP SPEED: 1.1 ML/MIN)
     Route: 041
     Dates: start: 20240523, end: 20240523
  2. ENHERTU [Suspect]
     Active Substance: FAM-TRASTUZUMAB DERUXTECAN-NXKI
     Indication: Metastases to lung
     Dosage: 5.4 MG/KG, ONCE EVERY 3 WK (DRIP SPEED: 1.1 ML/MIN)
     Route: 041
     Dates: start: 20240613, end: 20240613
  3. ENHERTU [Suspect]
     Active Substance: FAM-TRASTUZUMAB DERUXTECAN-NXKI
     Dosage: 5.4 MG/KG, ONCE EVERY 3 WK (DRIP SPEED: 1.1 ML/MIN)
     Route: 041
     Dates: start: 20240704, end: 20240704
  4. ENHERTU [Suspect]
     Active Substance: FAM-TRASTUZUMAB DERUXTECAN-NXKI
     Dosage: 5.4 MG/KG, ONCE EVERY 3 WK (DRIP SPEED: 1.1 ML/MIN)
     Route: 041
     Dates: start: 20240725, end: 20240725
  5. RABEPRAZOLE SODIUM [Concomitant]
     Active Substance: RABEPRAZOLE SODIUM
     Indication: Prophylaxis
     Dosage: 1 DF (TABLET), QD
     Route: 048
     Dates: start: 20240602
  6. RABEPRAZOLE SODIUM [Concomitant]
     Active Substance: RABEPRAZOLE SODIUM
     Indication: Gastrointestinal disorder prophylaxis
  7. BICYCLOL [Concomitant]
     Active Substance: BICYCLOL
     Indication: Hepatic function abnormal
     Dosage: 1 DF (TABLET), BID
     Route: 048
     Dates: start: 20240719, end: 20240724
  8. AMMONIUM GLYCYRRHIZATE\CYSTEINE HYDROCHLORIDE\GLYCINE [Concomitant]
     Active Substance: AMMONIUM GLYCYRRHIZATE\CYSTEINE HYDROCHLORIDE\GLYCINE
     Indication: Hepatic function abnormal
     Dosage: 2 DF (TABLET), BID
     Route: 048
     Dates: start: 20240719, end: 20240724
  9. DEXAMETHASONE SODIUM PHOSPHATE [Concomitant]
     Active Substance: DEXAMETHASONE PHOSPHATE\DEXAMETHASONE SODIUM PHOSPHATE
     Indication: Prophylaxis
     Dosage: 5 MG, SINGLE
     Route: 042
     Dates: start: 20240725, end: 20240725
  10. DEXAMETHASONE SODIUM PHOSPHATE [Concomitant]
     Active Substance: DEXAMETHASONE PHOSPHATE\DEXAMETHASONE SODIUM PHOSPHATE
     Indication: Allergy prophylaxis

REACTIONS (1)
  - Myelosuppression [Not Recovered/Not Resolved]

NARRATIVE: CASE EVENT DATE: 20240725
